FAERS Safety Report 21886306 (Version 2)
Quarter: 2023Q1

REPORT INFORMATION
  Report Type: Report from Study
  Country: US (occurrence: US)
  Receive Date: 20230119
  Receipt Date: 20230315
  Transmission Date: 20230418
  Serious: No
  Sender: FDA-Public Use
  Company Number: US-ABBVIE-4245571

PATIENT
  Age: 65 Year
  Sex: Female

DRUGS (1)
  1. HUMIRA [Suspect]
     Active Substance: ADALIMUMAB
     Indication: Rheumatoid arthritis
     Dosage: HUMIRA CF?STERNGTH-40 MG
     Route: 058
     Dates: start: 20220330

REACTIONS (3)
  - Influenza [Unknown]
  - Influenza A virus test positive [Unknown]
  - Illness [Unknown]

NARRATIVE: CASE EVENT DATE: 20221212
